FAERS Safety Report 8487966-8 (Version None)
Quarter: 2012Q3

REPORT INFORMATION
  Report Type: 
  Country: None (occurrence: None)
  Receive Date: 20120705
  Receipt Date: 20120628
  Transmission Date: 20120928
  Serious: Yes (Other)
  Sender: FDA-Public Use
  Company Number: PHHY2012FR056014

PATIENT
  Age: 81 Year
  Sex: Female

DRUGS (2)
  1. SANDOSTATIN LAR [Suspect]
     Indication: CARCINOID TUMOUR
     Dosage: 30 MG, MONTHLY
     Route: 030
     Dates: start: 20120519
  2. SANDOSTATIN LAR [Suspect]
     Dosage: 30 MG, MONTHLY
     Route: 030
     Dates: start: 20120620

REACTIONS (3)
  - LEUKOCYTOCLASTIC VASCULITIS [None]
  - ERYTHEMA [None]
  - SKIN PLAQUE [None]
